FAERS Safety Report 5761302-X (Version None)
Quarter: 2008Q2

REPORT INFORMATION
  Report Type: 
  Country: None (occurrence: None)
  Receive Date: 20080606
  Receipt Date: 20080530
  Transmission Date: 20081010
  Serious: Yes (Hospitalization, Disabling)
  Sender: FDA-Public Use
  Company Number: US-MERCK-0806USA00075

PATIENT
  Age: 90 Year
  Sex: Female

DRUGS (1)
  1. ZOCOR [Suspect]
     Route: 048
     Dates: end: 20080501

REACTIONS (3)
  - BLOOD CREATINE PHOSPHOKINASE INCREASED [None]
  - HEPATIC ENZYME INCREASED [None]
  - INFLUENZA LIKE ILLNESS [None]
